FAERS Safety Report 23286794 (Version 1)
Quarter: 2023Q4

REPORT INFORMATION
  Report Type: Spontaneous
  Country: US (occurrence: US)
  Receive Date: 20231212
  Receipt Date: 20231212
  Transmission Date: 20240109
  Serious: Yes (Death, Other)
  Sender: FDA-Public Use
  Company Number: US-OPELLA-2023OHG018689

PATIENT

DRUGS (1)
  1. TALC\ZINC OXIDE [Suspect]
     Active Substance: TALC\ZINC OXIDE
     Indication: Product used for unknown indication
     Route: 065

REACTIONS (2)
  - Mesothelioma malignant [Fatal]
  - Exposure to chemical pollution [Fatal]
